FAERS Safety Report 7257973-1 (Version None)
Quarter: 2011Q1

REPORT INFORMATION
  Report Type: 
  Country: None (occurrence: None)
  Receive Date: 20110129
  Receipt Date: 20100610
  Transmission Date: 20110831
  Serious: No
  Sender: FDA-Public Use
  Company Number: US-ABBOTT-10P-163-0650742-00

PATIENT
  Age: 62 Year
  Sex: Female

DRUGS (10)
  1. SINGULAIR [Concomitant]
     Indication: ASTHMA
  2. ZOLOFT [Concomitant]
     Indication: DEPRESSION
  3. INDERAL [Concomitant]
     Indication: TACHYCARDIA
  4. ELAVIL [Concomitant]
     Indication: MIGRAINE
     Dosage: AT BEDTIME
  5. PERCOCET [Concomitant]
     Indication: BREAKTHROUGH PAIN
     Dosage: DAILY
  6. COMBIVENT [Concomitant]
     Indication: ASTHMA
  7. HUMIRA [Suspect]
     Indication: PSORIATIC ARTHROPATHY
     Dates: start: 20100501
  8. METHADONE [Concomitant]
     Indication: PAIN
     Dosage: 4 TABS, THREE TIMES A DAY
  9. INDERAL [Concomitant]
     Indication: HYPERTENSION
  10. ELAVIL [Concomitant]
     Indication: PROPHYLAXIS

REACTIONS (2)
  - WHEEZING [None]
  - DYSPHONIA [None]
